FAERS Safety Report 15415279 (Version 1)
Quarter: 2018Q3

REPORT INFORMATION
  Report Type: Spontaneous
  Country: CN (occurrence: CN)
  Receive Date: 20180921
  Receipt Date: 20180921
  Transmission Date: 20181010
  Serious: Yes (Hospitalization, Other)
  Sender: FDA-Public Use
  Company Number: CN-GILEAD-2018-0364215

PATIENT
  Age: 51 Year
  Sex: Male

DRUGS (2)
  1. ADEFOVIR DIPIVOXIL. [Suspect]
     Active Substance: ADEFOVIR DIPIVOXIL
     Indication: CHRONIC HEPATITIS B
     Dosage: 10 MG, QD
     Route: 065
  2. ADEFOVIR DIPIVOXIL. [Suspect]
     Active Substance: ADEFOVIR DIPIVOXIL
     Indication: HEPATIC CIRRHOSIS

REACTIONS (11)
  - Hypophosphataemia [Recovering/Resolving]
  - Osteoporosis [Recovering/Resolving]
  - Intervertebral disc protrusion [Unknown]
  - Stress fracture [Unknown]
  - Bone marrow oedema [Unknown]
  - Femoral neck fracture [Unknown]
  - Hypokinesia [Recovering/Resolving]
  - Pain in extremity [Recovering/Resolving]
  - Pain [Recovering/Resolving]
  - Osteomalacia [Recovering/Resolving]
  - Hyperplasia [Unknown]

NARRATIVE: CASE EVENT DATE: 20161219
